FAERS Safety Report 5572633-0 (Version None)
Quarter: 2007Q4

REPORT INFORMATION
  Report Type: 
  Country: None (occurrence: None)
  Receive Date: 20071130
  Receipt Date: 20070710
  Transmission Date: 20080405
  Serious: Yes (Other)
  Sender: FDA-Public Use
  Company Number: WAES 00042104

PATIENT
  Age: 58 Year
  Sex: Male
  Weight: 80.7403 kg

DRUGS (11)
  1. FOSAMAX [Suspect]
     Indication: FRACTURE
     Dosage: PO, 70 MG WKY PO, 10 MG DAILY PO, 40 MG 2XW PO
     Route: 048
     Dates: end: 20000531
  2. FOSAMAX [Suspect]
     Indication: OSTEOPOROSIS
     Dosage: PO, 70 MG WKY PO, 10 MG DAILY PO, 40 MG 2XW PO
     Route: 048
     Dates: end: 20000531
  3. FOSAMAX [Suspect]
     Indication: FRACTURE
     Dosage: PO, 70 MG WKY PO, 10 MG DAILY PO, 40 MG 2XW PO
     Route: 048
     Dates: start: 19970901
  4. FOSAMAX [Suspect]
     Indication: OSTEOPOROSIS
     Dosage: PO, 70 MG WKY PO, 10 MG DAILY PO, 40 MG 2XW PO
     Route: 048
     Dates: start: 19970901
  5. FOSAMAX [Suspect]
     Indication: FRACTURE
     Dosage: PO, 70 MG WKY PO, 10 MG DAILY PO, 40 MG 2XW PO
     Route: 048
     Dates: start: 20020501
  6. FOSAMAX [Suspect]
     Indication: OSTEOPOROSIS
     Dosage: PO, 70 MG WKY PO, 10 MG DAILY PO, 40 MG 2XW PO
     Route: 048
     Dates: start: 20020501
  7. IMURAN [Concomitant]
  8. MEDROL [Concomitant]
  9. PERCOCET [Concomitant]
  10. ANTIMICROBIAL [Concomitant]
  11. PREDNISONE TAB [Concomitant]

REACTIONS (6)
  - ABDOMINAL DISTENSION [None]
  - BONE PAIN [None]
  - DYSGEUSIA [None]
  - MEDICATION ERROR [None]
  - OSTEONECROSIS [None]
  - SENSATION OF PRESSURE [None]
